FAERS Safety Report 16012115 (Version 1)
Quarter: 2019Q1

REPORT INFORMATION
  Report Type: Other
  Country: CA (occurrence: CA)
  Receive Date: 20190227
  Receipt Date: 20190227
  Transmission Date: 20190418
  Serious: Yes (Other)
  Sender: FDA-Public Use
  Company Number: CA-APOTEX-2019AP008199

PATIENT
  Age: 47 Year
  Sex: Female

DRUGS (2)
  1. SALBUTAMOL [Suspect]
     Active Substance: ALBUTEROL
     Indication: PRODUCT USED FOR UNKNOWN INDICATION
     Dosage: UNK
     Route: 065
  2. PREDNISONE. [Concomitant]
     Active Substance: PREDNISONE
     Indication: PRODUCT USED FOR UNKNOWN INDICATION
     Dosage: 0.5 MG, UNK
     Route: 065

REACTIONS (8)
  - Vocal cord dysfunction [Recovering/Resolving]
  - Depression [Recovering/Resolving]
  - Chest discomfort [Recovering/Resolving]
  - Generalised anxiety disorder [Recovering/Resolving]
  - Nasopharyngitis [Recovering/Resolving]
  - Peak expiratory flow rate decreased [Recovering/Resolving]
  - Lower respiratory tract infection [Recovering/Resolving]
  - Hypothyroidism [Recovering/Resolving]
